FAERS Safety Report 10196971 (Version 3)
Quarter: 2014Q2

REPORT INFORMATION
  Report Type: Spontaneous
  Country: AR (occurrence: AR)
  Receive Date: 20140527
  Receipt Date: 20140609
  Transmission Date: 20141212
  Serious: Yes (Death, Hospitalization)
  Sender: FDA-Public Use
  Company Number: AR-PFIZER INC-2014142271

PATIENT
  Age: 62 Year
  Sex: Male
  Weight: 102 kg

DRUGS (3)
  1. INLYTA [Suspect]
     Indication: METASTATIC RENAL CELL CARCINOMA
     Dosage: 5 MG, 1X/DAY
     Route: 048
     Dates: start: 201403, end: 20140514
  2. DELTISON [Concomitant]
     Dosage: 20 MG, UNK
  3. AMOXICILIN [Concomitant]
     Dosage: 500 MG, EVERY 8 HOURS, FOR 7 DAYS.

REACTIONS (2)
  - Respiratory arrest [Fatal]
  - Respiratory failure [Fatal]
